FAERS Safety Report 9208709 (Version 2)
Quarter: 2013Q3

REPORT INFORMATION
  Report Type: Spontaneous
  Country: US (occurrence: None)
  Receive Date: 20120806
  Receipt Date: 20130813
  Transmission Date: 20140515
  Serious: Yes (Other)
  Sender: FDA-Public Use
  Company Number: 2011AT000298

PATIENT
  Age: 64 Year
  Sex: Male

DRUGS (5)
  1. EDEX [Suspect]
     Indication: ERECTILE DYSFUNCTION
     Route: 011
     Dates: start: 201106, end: 201109
  2. BENICAR [Concomitant]
  3. PRAVASTATIN [Concomitant]
  4. ROPINIROLE [Concomitant]
  5. VESICARE [Concomitant]

REACTIONS (1)
  - Penile curvature [None]
